FAERS Safety Report 7002132-0 (Version None)
Quarter: 2010Q3

REPORT INFORMATION
  Report Type: 
  Country: None (occurrence: None)
  Receive Date: 20100920
  Receipt Date: 20100113
  Transmission Date: 20110219
  Serious: Yes (Other)
  Sender: FDA-Public Use
  Company Number: US-ASTRAZENECA-2006UW08463

PATIENT
  Age: 13417 Day
  Sex: Female
  Weight: 154.2 kg

DRUGS (15)
  1. SEROQUEL [Suspect]
     Indication: BIPOLAR DISORDER
     Route: 048
     Dates: start: 20000101, end: 20051001
  2. SEROQUEL [Suspect]
     Indication: BIPOLAR I DISORDER
     Route: 048
     Dates: start: 20000101, end: 20051001
  3. SEROQUEL [Suspect]
     Indication: ANXIETY
     Route: 048
     Dates: start: 20000101, end: 20051001
  4. SEROQUEL [Suspect]
     Dosage: 100-200 MG
     Route: 048
     Dates: start: 20010719
  5. SEROQUEL [Suspect]
     Dosage: 100-200 MG
     Route: 048
     Dates: start: 20010719
  6. SEROQUEL [Suspect]
     Dosage: 100-200 MG
     Route: 048
     Dates: start: 20010719
  7. CLOZARIL [Concomitant]
  8. HALDOL [Concomitant]
     Dates: start: 19940101, end: 19950101
  9. RISPERDAL [Concomitant]
     Dosage: 1-3 MG
     Dates: start: 20001206
  10. WELLBUTRIN SR [Concomitant]
     Dosage: 150-300 MG
     Route: 048
     Dates: start: 20001206
  11. TOPAMAX [Concomitant]
     Dosage: 25-150 MG
     Route: 048
     Dates: start: 20001206
  12. DEPAKOTE ER [Concomitant]
     Dosage: 500-1500 MG
     Route: 048
     Dates: start: 20001206
  13. COUMADIN [Concomitant]
     Indication: DEEP VEIN THROMBOSIS
     Dates: start: 20000101
  14. SYNTHROID [Concomitant]
     Dates: start: 20000101
  15. GLUCOPHAGE [Concomitant]
     Dates: start: 20000101

REACTIONS (3)
  - DEEP VEIN THROMBOSIS [None]
  - THROMBOSIS [None]
  - TYPE 2 DIABETES MELLITUS [None]
